FAERS Safety Report 6085718-X (Version None)
Quarter: 2009Q1

REPORT INFORMATION
  Report Type: 
  Country: None (occurrence: None)
  Receive Date: 20090220
  Receipt Date: 20090212
  Transmission Date: 20090719
  Serious: Yes (Hospitalization)
  Sender: FDA-Public Use
  Company Number: PHHY2008JP22747

PATIENT
  Sex: Male

DRUGS (3)
  1. ICL670A ICL+DISTAB [Suspect]
     Indication: IRON OVERLOAD
     Dosage: 500 MG/DAY
     Route: 048
     Dates: start: 20080823, end: 20080914
  2. LOXONIN [Concomitant]
     Dosage: 2 DF/DAY
     Route: 048
     Dates: start: 20080911, end: 20080915
  3. CIPROXAN [Concomitant]
     Dosage: 2 DF/DAY
     Route: 048
     Dates: start: 20080911, end: 20080915

REACTIONS (3)
  - ANOREXIA [None]
  - ARTHRITIS BACTERIAL [None]
  - PYREXIA [None]
